FAERS Safety Report 5713890-7 (Version None)
Quarter: 2008Q2

REPORT INFORMATION
  Report Type: 
  Country: None (occurrence: None)
  Receive Date: 20080422
  Receipt Date: 20080422
  Transmission Date: 20081010
  Serious: Yes (Other)
  Sender: FDA-Public Use
  Company Number: None

PATIENT
  Age: 72 Year
  Sex: Female
  Weight: 56.6996 kg

DRUGS (2)
  1. ABILIFY [Suspect]
     Indication: BIPOLAR DISORDER
     Dosage: ONCE A DAY, INJECTION OR PILLS
  2. DELANTIN [Concomitant]

REACTIONS (8)
  - DEPRESSION [None]
  - DIZZINESS [None]
  - DIZZINESS POSTURAL [None]
  - DROOLING [None]
  - DRUG TOXICITY [None]
  - HEAD INJURY [None]
  - SUICIDAL IDEATION [None]
  - TREMOR [None]
